FAERS Safety Report 6691845-6 (Version None)
Quarter: 2010Q2

REPORT INFORMATION
  Report Type: 
  Country: None (occurrence: None)
  Receive Date: 20100422
  Receipt Date: 20100416
  Transmission Date: 20101027
  Serious: Yes (Life-Threatening, Hospitalization, Disabling)
  Sender: FDA-Public Use
  Company Number: US-ROCHE-666897

PATIENT
  Sex: Male
  Weight: 103.8 kg

DRUGS (9)
  1. PEGINTERFERON ALFA-2A [Suspect]
     Dosage: PERMANENTLY DISCONTINUED
     Route: 058
     Dates: start: 20090624, end: 20091030
  2. RIBAVIRIN [Suspect]
     Dosage: PERMANENTLY DISCONTINUED
     Route: 048
     Dates: start: 20090624, end: 20091030
  3. PIOGLITAZONE [Suspect]
     Dosage: FORM REPORTED AS: PILL.PERMANENTLY DISCONTINUED
     Route: 048
     Dates: start: 20090226, end: 20091030
  4. SIMVASTATIN [Concomitant]
     Dates: start: 20070601
  5. NIFEDIPINE [Concomitant]
     Dosage: DRUG REPORTED AS: NIFEDIPINE XL.
     Dates: start: 20070401
  6. HYDROCHLOROTHIAZIDE [Concomitant]
     Dates: start: 20070401
  7. LISINOPRIL [Concomitant]
     Dates: start: 20070401
  8. SPIRIVA [Concomitant]
     Dosage: DRUG REPORTED AS: SPIRIVA HANDIHALES 18 MG.
     Dates: start: 20070401
  9. METFORMIN HCL [Concomitant]
     Dates: start: 20080601

REACTIONS (1)
  - SPINAL CORD INJURY CERVICAL [None]
